FAERS Safety Report 6654884-7 (Version None)
Quarter: 2010Q1

REPORT INFORMATION
  Report Type: 
  Country: None (occurrence: None)
  Receive Date: 20100329
  Receipt Date: 20100319
  Transmission Date: 20100710
  Serious: Yes (Hospitalization)
  Sender: FDA-Public Use
  Company Number: US-BIOGENIDEC-2010BI009675

PATIENT
  Age: 55 Year
  Sex: Female

DRUGS (3)
  1. AVONEX [Suspect]
     Indication: MULTIPLE SCLEROSIS
     Route: 030
     Dates: start: 20020426, end: 20030601
  2. AVONEX [Suspect]
     Route: 030
     Dates: start: 20031219
  3. AVONEX [Suspect]
     Route: 030
     Dates: start: 20100305

REACTIONS (1)
  - CAROTID ARTERY DISEASE [None]
